FAERS Safety Report 4874762-3 (Version None)
Quarter: 2006Q1

REPORT INFORMATION
  Report Type: 
  Country: None (occurrence: None)
  Receive Date: 20060105
  Receipt Date: 20060105
  Transmission Date: 20060701
  Serious: No
  Sender: FDA-Public Use
  Company Number: None

PATIENT
  Sex: Male
  Weight: 88.4514 kg

DRUGS (1)
  1. OXYCODONE 10 MG CR 10 MG ENDO [Suspect]
     Indication: FLANK PAIN
     Dosage: ONE TABLET EVERY 12 HOURS PO
     Route: 048
     Dates: start: 20051214, end: 20060104

REACTIONS (3)
  - INADEQUATE ANALGESIA [None]
  - PHARMACEUTICAL PRODUCT COMPLAINT [None]
  - THERAPEUTIC RESPONSE UNEXPECTED WITH DRUG SUBSTITUTION [None]
